FAERS Safety Report 7151162-7 (Version None)
Quarter: 2010Q4

REPORT INFORMATION
  Report Type: 
  Country: None (occurrence: None)
  Receive Date: 20101210
  Receipt Date: 20101201
  Transmission Date: 20110411
  Serious: Yes (Hospitalization, Other)
  Sender: FDA-Public Use
  Company Number: IT-ACTELION-A-CH2010-39812

PATIENT
  Age: 67 Year
  Sex: Female

DRUGS (3)
  1. ZAVESCA [Suspect]
     Indication: NIEMANN-PICK DISEASE
     Dosage: 100 MG, OD
     Route: 048
     Dates: start: 20100721, end: 20100723
  2. PHENOBARBITAL [Concomitant]
  3. LEVETIRACETAM [Concomitant]

REACTIONS (7)
  - CONDITION AGGRAVATED [None]
  - DYSPHAGIA [None]
  - DYSPNOEA [None]
  - GRAND MAL CONVULSION [None]
  - NEUROLOGICAL DECOMPENSATION [None]
  - NIEMANN-PICK DISEASE [None]
  - PNEUMONIA ASPIRATION [None]
